FAERS Safety Report 18479377 (Version 1)
Quarter: 2020Q4

REPORT INFORMATION
  Report Type: Spontaneous
  Country: US (occurrence: US)
  Receive Date: 20201109
  Receipt Date: 20201109
  Transmission Date: 20210114
  Serious: Yes (Other)
  Sender: FDA-Public Use
  Company Number: US-SPECGX-T202002181

PATIENT
  Age: 58 Year
  Sex: Male

DRUGS (14)
  1. HYDROMORPHONE [Suspect]
     Active Substance: HYDROMORPHONE
     Dosage: UNK (0.548 MG/D)
     Route: 037
  2. DULOXETINE. [Suspect]
     Active Substance: DULOXETINE
     Indication: NEURALGIA
     Dosage: 60 MILLIGRAM, QD
     Route: 065
  3. PREGABALIN. [Suspect]
     Active Substance: PREGABALIN
     Dosage: 450 MILLIGRAM, QD
     Route: 065
  4. PREGABALIN. [Suspect]
     Active Substance: PREGABALIN
     Dosage: 150 MILLIGRAM, BID
     Route: 065
  5. OXYCODONE [Suspect]
     Active Substance: OXYCODONE
     Indication: BREAKTHROUGH PAIN
     Dosage: 80 MILLIGRAM, QD (EVERY 4 TO 6 HOURS)
     Route: 065
  6. HYDROMORPHONE [Suspect]
     Active Substance: HYDROMORPHONE
     Indication: NEURALGIA
     Dosage: 50 MICROGRAM
     Route: 037
  7. HYDROMORPHONE [Suspect]
     Active Substance: HYDROMORPHONE
     Dosage: UNK (0.4572 MG/D)
     Route: 037
  8. OXYCODONE [Suspect]
     Active Substance: OXYCODONE
     Dosage: UNK (10-20 MG, EVERY 4 HOURS)
     Route: 065
  9. HYDROMORPHONE [Suspect]
     Active Substance: HYDROMORPHONE
     Dosage: UNK (100 UG BOLUS, INCREASING THE DAILY BASAL RATE TO 0.25 MG/D)
     Route: 037
  10. METHADONE [Suspect]
     Active Substance: METHADONE HYDROCHLORIDE
     Indication: NEURALGIA
     Dosage: 40 MILLIGRAM, QD
     Route: 065
  11. METHADONE [Suspect]
     Active Substance: METHADONE HYDROCHLORIDE
     Dosage: 10 MILLIGRAM, BID
     Route: 065
  12. METHADONE [Suspect]
     Active Substance: METHADONE HYDROCHLORIDE
     Dosage: 5 MILLIGRAM, BID
     Route: 065
  13. GABAPENTIN. [Suspect]
     Active Substance: GABAPENTIN
     Indication: NEURALGIA
     Dosage: 2400 MILLIGRAM, QD
     Route: 048
  14. PREGABALIN. [Suspect]
     Active Substance: PREGABALIN
     Indication: NEURALGIA
     Dosage: 300 MILLIGRAM, QD
     Route: 065

REACTIONS (3)
  - Headache [Unknown]
  - Cognitive disorder [Recovering/Resolving]
  - Drug ineffective [Unknown]
